FAERS Safety Report 7437787-X (Version None)
Quarter: 2011Q2

REPORT INFORMATION
  Report Type: 
  Country: None (occurrence: None)
  Receive Date: 20110421
  Receipt Date: 20110421
  Transmission Date: 20111010
  Serious: Yes (Hospitalization)
  Sender: FDA-Public Use
  Company Number: None

PATIENT
  Age: 53 Year
  Sex: Male
  Weight: 73.48 kg

DRUGS (1)
  1. LISINOPRIL [Suspect]
     Indication: HYPERTENSION
     Dosage: 2.5 MG ONCE PO
     Route: 048
     Dates: start: 20101014, end: 20101015

REACTIONS (2)
  - PHARYNGEAL OEDEMA [None]
  - ANGIOEDEMA [None]
